FAERS Safety Report 9231979 (Version 1)
Quarter: 2013Q2

REPORT INFORMATION
  Report Type: Spontaneous
  Country: FR (occurrence: FR)
  Receive Date: 20130415
  Receipt Date: 20130415
  Transmission Date: 20140414
  Serious: Yes (Other)
  Sender: FDA-Public Use
  Company Number: FR-NICOBRDEVP-2013-05181

PATIENT
  Age: 61 Year
  Sex: Female
  Weight: 80 kg

DRUGS (6)
  1. TERBINAFINE [Suspect]
     Indication: ONYCHOMYCOSIS
     Dosage: 250 MG, DAILY
     Route: 048
     Dates: start: 201301, end: 20130306
  2. LEVOTHYROX [Suspect]
     Indication: HYPOTHYROIDISM
     Dosage: 150 MG, DAILY
     Route: 048
  3. TEMERIT [Suspect]
     Indication: HYPERTENSION
     Dosage: 5 MG, DAILY
     Route: 048
  4. LOCERYL [Suspect]
     Indication: ONYCHOMYCOSIS
     Dosage: 1 DF, 2/WEEK
     Route: 061
  5. ACTIVELLE [Suspect]
     Indication: MENOPAUSE
     Dosage: 1 DF, DAILY
     Route: 048
  6. PROZAC [Suspect]
     Indication: DEPRESSION
     Dosage: 20 MG, DAILY
     Route: 048

REACTIONS (2)
  - Parosmia [Not Recovered/Not Resolved]
  - Dysgeusia [Not Recovered/Not Resolved]
